FAERS Safety Report 4415299-5 (Version None)
Quarter: 2004Q3

REPORT INFORMATION
  Report Type: 
  Country: None (occurrence: None)
  Receive Date: 20040730
  Receipt Date: 20040719
  Transmission Date: 20050211
  Serious: Yes (Life-Threatening, Hospitalization, Disabling)
  Sender: FDA-Public Use
  Company Number: 207480

PATIENT
  Age: 4 Year
  Sex: Female
  Weight: 17 kg

DRUGS (9)
  1. MABTHERA (RITUXIMAB) CONC FOR SOLUTION FOR INFUSION [Suspect]
     Indication: LYMPHOPROLIFERATIVE DISORDER
     Dosage: 20 MG, SINGLE, INTRAVENOUS
     Route: 042
     Dates: start: 20040612, end: 20040612
  2. PREDNISOLONE [Concomitant]
  3. GANCICLOVIR SODIUM [Concomitant]
  4. MEROPENEM (MEROPENEM) [Concomitant]
  5. NYSTATIN [Concomitant]
  6. SYTRON (SODIUM FEREDETATE) [Concomitant]
  7. FLUCONAZOLE [Concomitant]
  8. ALLOPURINOL [Concomitant]
  9. VANCOMYCIN [Concomitant]

REACTIONS (5)
  - CHILLS [None]
  - MUSCULOSKELETAL STIFFNESS [None]
  - PLEURAL EFFUSION [None]
  - PYREXIA [None]
  - SINUS TACHYCARDIA [None]
